FAERS Safety Report 11431093 (Version 1)
Quarter: 2015Q3

REPORT INFORMATION
  Report Type: Spontaneous
  Country: US (occurrence: US)
  Receive Date: 20150828
  Receipt Date: 20150828
  Transmission Date: 20151125
  Serious: No
  Sender: FDA-Public Use
  Company Number: US-TEVA-589264USA

PATIENT
  Age: 64 Year
  Sex: Female

DRUGS (1)
  1. NUVIGIL [Suspect]
     Active Substance: ARMODAFINIL
     Indication: SLEEP APNOEA SYNDROME
     Dates: start: 201508

REACTIONS (3)
  - Glossodynia [Unknown]
  - Lip pain [Unknown]
  - Hypersensitivity [Unknown]
